FAERS Safety Report 21373406 (Version 1)
Quarter: 2022Q3

REPORT INFORMATION
  Report Type: Spontaneous
  Country: JP (occurrence: JP)
  Receive Date: 20220925
  Receipt Date: 20220925
  Transmission Date: 20221026
  Serious: Yes (Hospitalization)
  Sender: FDA-Public Use
  Company Number: JP-TEVA-2022-JP-2076655

PATIENT
  Age: 5 Decade
  Sex: Male

DRUGS (1)
  1. COPAXONE [Suspect]
     Active Substance: GLATIRAMER ACETATE
     Indication: Multiple sclerosis relapse prophylaxis
     Dosage: 20 MILLIGRAM DAILY; SYRINGE
     Route: 058

REACTIONS (2)
  - Uhthoff^s phenomenon [Unknown]
  - COVID-19 [Not Recovered/Not Resolved]

NARRATIVE: CASE EVENT DATE: 20220901
